FAERS Safety Report 21860452 (Version 1)
Quarter: 2023Q1

REPORT INFORMATION
  Report Type: Spontaneous
  Country: US (occurrence: None)
  Receive Date: 20230113
  Receipt Date: 20230113
  Transmission Date: 20230418
  Serious: Yes (Life-Threatening, Disabling, Other)
  Sender: FDA-Public Use
  Company Number: None

PATIENT
  Age: 55 Year
  Sex: Female
  Weight: 68.85 kg

DRUGS (5)
  1. COREG CR [Suspect]
     Active Substance: CARVEDILOL PHOSPHATE
     Indication: Myocardial bridging
     Dosage: OTHER QUANTITY : 30 CAPSULE(S);?FREQUENCY : DAILY;?
     Route: 048
     Dates: start: 20220701, end: 20230108
  2. COREG CR [Concomitant]
     Active Substance: CARVEDILOL PHOSPHATE
  3. COCONUT OIL [Concomitant]
     Active Substance: COCONUT OIL
  4. vitamin D. [Concomitant]
  5. COREG CR [Suspect]
     Active Substance: CARVEDILOL PHOSPHATE
     Indication: Cardiac failure

REACTIONS (12)
  - Urticaria [None]
  - Rash [None]
  - Pruritus [None]
  - Skin exfoliation [None]
  - Deformity [None]
  - Palpitations [None]
  - Dyspnoea [None]
  - Dizziness [None]
  - Vision blurred [None]
  - Drug withdrawal syndrome [None]
  - Documented hypersensitivity to administered product [None]
  - Product label issue [None]

NARRATIVE: CASE EVENT DATE: 20220730
